FAERS Safety Report 8458342-9 (Version None)
Quarter: 2012Q2

REPORT INFORMATION
  Report Type: 
  Country: None (occurrence: None)
  Receive Date: 20120615
  Receipt Date: 20120608
  Transmission Date: 20120825
  Serious: No
  Sender: FDA-Public Use
  Company Number: 2012SP031334

PATIENT
  Sex: Female

DRUGS (1)
  1. ISOCEF (CEFTIBUTEN /01166201/) [Suspect]
     Indication: PHARYNGOTONSILLITIS
     Dosage: ORAL_SOL;PO;QD
     Route: 048
     Dates: start: 20120601, end: 20120605

REACTIONS (4)
  - OEDEMA PERIPHERAL [None]
  - JOINT SWELLING [None]
  - RASH GENERALISED [None]
  - PRURITUS [None]
